FAERS Safety Report 15878379 (Version 1)
Quarter: 2019Q1

REPORT INFORMATION
  Report Type: Spontaneous
  Country: US (occurrence: US)
  Receive Date: 20190103
  Receipt Date: 20190103
  Transmission Date: 20190417
  Serious: Yes (Hospitalization)
  Sender: FDA-Public Use
  Company Number: None

PATIENT
  Age: 36 Year
  Sex: Male

DRUGS (3)
  1. SIMPONI [Suspect]
     Active Substance: GOLIMUMAB
     Indication: COLITIS
  2. SIMPONI [Suspect]
     Active Substance: GOLIMUMAB
     Indication: COLITIS
     Route: 058
     Dates: start: 20181030
  3. SIMPONI [Suspect]
     Active Substance: GOLIMUMAB
     Indication: GASTROENTERITIS
     Route: 058
     Dates: start: 20181030

REACTIONS (2)
  - Sepsis [None]
  - Pneumonia [None]

NARRATIVE: CASE EVENT DATE: 201812
